FAERS Safety Report 7027206-X (Version None)
Quarter: 2010Q4

REPORT INFORMATION
  Report Type: 
  Country: None (occurrence: None)
  Receive Date: 20101004
  Receipt Date: 20100927
  Transmission Date: 20110411
  Serious: Yes (Hospitalization)
  Sender: FDA-Public Use
  Company Number: GB-JNJFOC-20040707784

PATIENT
  Age: 69 Year
  Sex: Female

DRUGS (6)
  1. IBUPROFEN [Suspect]
     Indication: ARTHRITIS
     Route: 048
  2. IBUPROFEN [Suspect]
     Route: 048
  3. ROFECOXIB [Suspect]
     Indication: ARTHRITIS
     Route: 048
  4. LIPITOR [Concomitant]
     Route: 048
  5. LIPITOR [Concomitant]
     Route: 048
  6. PARACETAMOL [Concomitant]
     Dosage: 1 G PRN
     Route: 048

REACTIONS (4)
  - DYSPNOEA [None]
  - GASTROINTESTINAL ULCER [None]
  - OESOPHAGITIS [None]
  - SYNCOPE [None]
